FAERS Safety Report 10162720 (Version 1)
Quarter: 2014Q2

REPORT INFORMATION
  Report Type: Spontaneous
  Country: PE (occurrence: PE)
  Receive Date: 20140509
  Receipt Date: 20140509
  Transmission Date: 20141212
  Serious: Yes (Other)
  Sender: FDA-Public Use
  Company Number: PE-PFIZER INC-2014126979

PATIENT
  Age: 36 Year
  Sex: Male

DRUGS (2)
  1. PRISTIQ [Suspect]
     Dosage: UNK, 1X/DAY
     Route: 048
  2. PRISTIQ [Suspect]
     Dosage: UNK, 2X/DAY
     Route: 048

REACTIONS (1)
  - Fibula fracture [Unknown]
